FAERS Safety Report 5286395-8 (Version None)
Quarter: 2007Q2

REPORT INFORMATION
  Report Type: 
  Country: None (occurrence: None)
  Receive Date: 20070404
  Receipt Date: 20070330
  Transmission Date: 20071010
  Serious: Yes (Hospitalization)
  Sender: FDA-Public Use
  Company Number: 2006UW08041

PATIENT
  Sex: Male
  Weight: 90.9 kg

DRUGS (4)
  1. SEROQUEL [Suspect]
     Indication: DEPRESSION
     Route: 048
     Dates: end: 20040202
  2. TRAZODONE HCL [Concomitant]
     Dates: start: 19970101
  3. LAMICTAL [Concomitant]
     Dates: start: 19970101
  4. TOPAMAX [Concomitant]

REACTIONS (5)
  - DEPRESSION [None]
  - DIABETES MELLITUS [None]
  - HYPERTENSION [None]
  - INFLUENZA [None]
  - MULTIPLE ALLERGIES [None]
